FAERS Safety Report 14266660 (Version 6)
Quarter: 2018Q3

REPORT INFORMATION
  Report Type: Spontaneous
  Country: US (occurrence: US)
  Receive Date: 20171211
  Receipt Date: 20180904
  Transmission Date: 20181010
  Serious: Yes (Hospitalization, Other)
  Sender: FDA-Public Use
  Company Number: US-BRISTOL-MYERS SQUIBB COMPANY-BMS-2017-111491

PATIENT
  Age: 56 Year
  Sex: Female
  Weight: 76.19 kg

DRUGS (1)
  1. ORENCIA [Suspect]
     Active Substance: ABATACEPT
     Indication: RHEUMATOID ARTHRITIS
     Dosage: 125 MG, QWK
     Route: 058
     Dates: start: 201604

REACTIONS (6)
  - Arthropathy [Unknown]
  - Pain [Not Recovered/Not Resolved]
  - Pneumonia [Unknown]
  - Influenza [Unknown]
  - Cardiac disorder [Unknown]
  - Arthritis [Unknown]

NARRATIVE: CASE EVENT DATE: 20180529
